FAERS Safety Report 15665454 (Version 3)
Quarter: 2018Q4

REPORT INFORMATION
  Report Type: Spontaneous
  Country: AT (occurrence: AT)
  Receive Date: 20181128
  Receipt Date: 20181227
  Transmission Date: 20190205
  Serious: Yes (Hospitalization)
  Sender: FDA-Public Use
  Company Number: AT-CELGENEUS-AUT-20181107853

PATIENT
  Age: 78 Year
  Sex: Female
  Weight: 55 kg

DRUGS (26)
  1. OLEOVIT-D3 [Concomitant]
     Indication: OSTEOLYSIS
     Dosage: 20 DROPS
     Route: 048
     Dates: start: 20161129
  2. VALACICLOVIR [Concomitant]
     Active Substance: VALACYCLOVIR HYDROCHLORIDE
     Indication: HERPES ZOSTER
     Dosage: 1000 MILLIGRAM
     Route: 048
     Dates: start: 20180417
  3. EPOETIN [Concomitant]
     Active Substance: ERYTHROPOIETIN
     Indication: ANAEMIA
     Dosage: 10 INTERNATIONAL UNITS THOUSANDS
     Route: 058
     Dates: start: 20180220
  4. REVLIMID [Suspect]
     Active Substance: LENALIDOMIDE
     Indication: PLASMA CELL MYELOMA
     Dosage: 15 MILLIGRAM
     Route: 048
     Dates: start: 20161122
  5. DEXAMETHASONE. [Suspect]
     Active Substance: DEXAMETHASONE
     Indication: PLASMA CELL MYELOMA
     Route: 041
     Dates: start: 20161122
  6. SIMVASTATIN. [Concomitant]
     Active Substance: SIMVASTATIN
     Indication: HYPERCHOLESTEROLAEMIA
     Dosage: 20 MILLIGRAM
     Route: 048
  7. TRAMAL [Concomitant]
     Active Substance: TRAMADOL
     Indication: PAIN
     Route: 048
     Dates: start: 20161114
  8. MAGNESIUM VERLA [Concomitant]
     Active Substance: MAGNESIUM
     Indication: HYPOMAGNESAEMIA
     Dosage: 3 DOSAGE FORMS
     Route: 048
     Dates: start: 20180123
  9. MEDIHONEY [Concomitant]
     Active Substance: HONEY
     Indication: SKIN ULCER
     Route: 061
     Dates: start: 20171201
  10. SOLCOSERYL [Concomitant]
     Active Substance: SOLCOSERYL
     Indication: GINGIVITIS
     Route: 061
     Dates: start: 20180515
  11. SWISS-KAL EFF [Concomitant]
     Indication: HYPOKALAEMIA
     Dosage: 1 DOSAGE FORMS
     Route: 048
     Dates: start: 20180807
  12. PASPERTIN [Concomitant]
     Indication: PROPHYLAXIS OF NAUSEA AND VOMITING
     Route: 048
     Dates: start: 20181004
  13. PYRALVEX [Concomitant]
     Active Substance: RHUBARB\SALICYLIC ACID
     Indication: APHTHOUS ULCER
     Route: 061
     Dates: start: 20181002
  14. SOLCOSERYL [Concomitant]
     Active Substance: SOLCOSERYL
     Indication: STOMATITIS
     Dosage: 3 DOSAGE FORMS
     Route: 061
     Dates: start: 20180904
  15. RAMIPRIL. [Concomitant]
     Active Substance: RAMIPRIL
     Indication: HYPERTENSION
     Dosage: 5 MILLIGRAM
     Route: 048
  16. PRADAXA [Concomitant]
     Active Substance: DABIGATRAN ETEXILATE MESYLATE
     Indication: DEEP VEIN THROMBOSIS
     Dosage: 300 MILLIGRAM
     Route: 048
     Dates: start: 20170118
  17. TRAMADOL RETARD [Concomitant]
     Active Substance: TRAMADOL
     Indication: SKIN ULCER
     Dosage: 200 MILLIGRAM
     Route: 048
     Dates: start: 20180417
  18. NEPHROTRANS [Concomitant]
     Active Substance: SODIUM BICARBONATE
     Indication: FANCONI SYNDROME ACQUIRED
     Dosage: 1680 MILLIGRAM
     Route: 048
     Dates: start: 20180727
  19. METOPROLOL. [Concomitant]
     Active Substance: METOPROLOL
     Indication: HYPERTENSION
     Dosage: 100 MILLIGRAM
     Route: 048
  20. PANTOPRAZOLE [Concomitant]
     Active Substance: PANTOPRAZOLE
     Indication: GASTRIC ULCER
     Route: 048
  21. ZOLEDRONATE [Concomitant]
     Active Substance: ZOLEDRONIC ACID
     Indication: OSTEOLYSIS
     Dosage: 4 MILLIGRAM
     Route: 041
     Dates: start: 20161206
  22. GLANDOMED [Concomitant]
     Indication: APHTHOUS ULCER
     Route: 048
     Dates: start: 20181002
  23. FUROSEMIDE. [Concomitant]
     Active Substance: FUROSEMIDE
     Indication: OEDEMA
     Route: 048
  24. CALCIDURAN [Concomitant]
     Indication: OSTEOPOROSIS
     Dosage: 1000 MILLIGRAM
     Route: 048
     Dates: start: 20161114
  25. FLAMMAZINE [Concomitant]
     Active Substance: SILVER SULFADIAZINE
     Indication: SKIN ULCER
     Dosage: 1 DOSAGE FORMS
     Route: 061
     Dates: start: 20171114
  26. BETAMETHASONE. [Concomitant]
     Active Substance: BETAMETHASONE
     Indication: SKIN ULCER
     Dosage: 1680 MILLIGRAM
     Route: 061
     Dates: start: 20180427

REACTIONS (1)
  - Skin ulcer [Recovered/Resolved]

NARRATIVE: CASE EVENT DATE: 20181116
